FAERS Safety Report 7479656-5 (Version None)
Quarter: 2011Q2

REPORT INFORMATION
  Report Type: 
  Country: None (occurrence: None)
  Receive Date: 20110513
  Receipt Date: 20110511
  Transmission Date: 20111010
  Serious: Yes (Death, Hospitalization)
  Sender: FDA-Public Use
  Company Number: FR-ABBOTT-11P-056-0724746-00

PATIENT
  Age: 59 Year
  Sex: Male
  Weight: 85 kg

DRUGS (1)
  1. HUMIRA [Suspect]
     Indication: RHEUMATOID ARTHRITIS

REACTIONS (7)
  - DERMATITIS ALLERGIC [None]
  - CARDIAC VALVE DISEASE [None]
  - DEATH [None]
  - TUBERCULOSIS [None]
  - NEOPLASM MALIGNANT [None]
  - CARDIAC DISORDER [None]
  - ALLERGIC OEDEMA [None]
